FAERS Safety Report 12125750 (Version 2)
Quarter: 2016Q1

REPORT INFORMATION
  Report Type: Spontaneous
  Country: IT (occurrence: IT)
  Receive Date: 20160229
  Receipt Date: 20160329
  Transmission Date: 20160526
  Serious: Yes (Other)
  Sender: FDA-Public Use
  Company Number: IT-AMGEN-ITASP2016023034

PATIENT
  Age: 80 Year
  Sex: Male
  Weight: 83 kg

DRUGS (6)
  1. LEVOFOLENE [Concomitant]
     Active Substance: LEVOLEUCOVORIN CALCIUM
     Dosage: 150 MG, UNK
     Route: 042
     Dates: start: 20151027
  2. OXALIPLATIN. [Concomitant]
     Active Substance: OXALIPLATIN
     Dosage: 130 MG, UNK
     Route: 042
     Dates: start: 20151027
  3. ACETYLSALICYLIC ACID [Concomitant]
     Active Substance: ASPIRIN
     Dosage: UNK
  4. VECTIBIX [Suspect]
     Active Substance: PANITUMUMAB
     Indication: RECTAL CANCER
     Dosage: 400 MG, TOTAL
     Route: 042
     Dates: start: 20151027, end: 20151027
  5. MINOCICLINA [Concomitant]
     Dosage: 100 MG, QD
     Dates: end: 20151209
  6. FLUOROURACIL. [Concomitant]
     Active Substance: FLUOROURACIL
     Dosage: 3000 MG, UNK
     Route: 042

REACTIONS (5)
  - Skin disorder [Recovered/Resolved]
  - Skin ulcer [Recovered/Resolved]
  - Scab [Recovered/Resolved]
  - Rash pustular [Recovered/Resolved]
  - Skin toxicity [Unknown]

NARRATIVE: CASE EVENT DATE: 20151110
